FAERS Safety Report 16578324 (Version 2)
Quarter: 2019Q3

REPORT INFORMATION
  Report Type: Report from Study
  Country: US (occurrence: US)
  Receive Date: 20190716
  Receipt Date: 20190812
  Transmission Date: 20191004
  Serious: Yes (Other)
  Sender: FDA-Public Use
  Company Number: PHEH2019US028881

PATIENT
  Age: 57 Year
  Sex: Female

DRUGS (1)
  1. MAYZENT [Suspect]
     Active Substance: SIPONIMOD
     Indication: SECONDARY PROGRESSIVE MULTIPLE SCLEROSIS
     Dosage: 2 MG, QD
     Route: 048
     Dates: start: 20190705, end: 20190709

REACTIONS (4)
  - Pneumonia [Recovering/Resolving]
  - Emotional distress [Recovering/Resolving]
  - Crying [Unknown]
  - Drug titration error [Unknown]

NARRATIVE: CASE EVENT DATE: 20190708
